FAERS Safety Report 11168322 (Version 2)
Quarter: 2015Q2

REPORT INFORMATION
  Report Type: Spontaneous
  Country: US (occurrence: US)
  Receive Date: 20150605
  Receipt Date: 20150612
  Transmission Date: 20150821
  Serious: No
  Sender: FDA-Public Use
  Company Number: US-BAYER-2015-299923

PATIENT
  Sex: Female

DRUGS (1)
  1. CLIMARA [Suspect]
     Active Substance: ESTRADIOL
     Dosage: 0.025 MG/D, UNK
     Route: 062

REACTIONS (3)
  - Inappropriate schedule of drug administration [None]
  - Product adhesion issue [None]
  - Drug administered at inappropriate site [None]
